FAERS Safety Report 10952132 (Version 1)
Quarter: 2015Q1

REPORT INFORMATION
  Report Type: Spontaneous
  Country: US (occurrence: None)
  Receive Date: 20150323
  Receipt Date: 20150323
  Transmission Date: 20150721
  Serious: Yes (Hospitalization)
  Sender: FDA-Public Use
  Company Number: 201406-US-000758

PATIENT
  Age: 56 Year
  Sex: Male

DRUGS (4)
  1. METAMUCIL (PLANTAGO OVATA) [Concomitant]
  2. FLEET [Suspect]
     Active Substance: BISACODYL\GLYCERIN\MINERAL OIL\SODIUM PHOSPHATE, DIBASIC\SODIUM PHOSPHATE, MONOBASIC
     Indication: CONSTIPATION
     Route: 054
  3. BENICAR [Concomitant]
     Active Substance: OLMESARTAN MEDOXOMIL
  4. BYSTOLIC [Concomitant]
     Active Substance: NEBIVOLOL HYDROCHLORIDE

REACTIONS (11)
  - Diverticulum intestinal [None]
  - Hypertensive nephropathy [None]
  - Acute kidney injury [None]
  - Chronic kidney disease [None]
  - Hyperkalaemia [None]
  - Acute phosphate nephropathy [None]
  - Dysgeusia [None]
  - Haemodialysis [None]
  - Hyperphosphataemia [None]
  - Renal tubular necrosis [None]
  - Hyperparathyroidism [None]

NARRATIVE: CASE EVENT DATE: 20130701
